FAERS Safety Report 11270511 (Version 9)
Quarter: 2016Q4

REPORT INFORMATION
  Report Type: Report from Study
  Country: None (occurrence: IE)
  Receive Date: 20150714
  Receipt Date: 20161222
  Transmission Date: 20170206
  Serious: Yes (Death, Hospitalization)
  Sender: FDA-Public Use
  Company Number: IE-ABBVIE-15P-229-1425924-00

PATIENT
  Age: 56 Year
  Sex: Male
  Weight: 133 kg

DRUGS (4)
  1. HUMIRA [Suspect]
     Active Substance: ADALIMUMAB
     Route: 058
     Dates: end: 20101017
  2. VICTOZA [Concomitant]
     Active Substance: LIRAGLUTIDE
     Indication: GLUCOSE TOLERANCE IMPAIRED
     Route: 058
     Dates: start: 201112
  3. HUMIRA [Suspect]
     Active Substance: ADALIMUMAB
     Indication: PSORIASIS
     Route: 058
     Dates: start: 20100517, end: 20100517
  4. ACITRETIN. [Concomitant]
     Active Substance: ACITRETIN
     Indication: PSORIASIS
     Dates: start: 20110728

REACTIONS (5)
  - Metastases to spine [Fatal]
  - Metastases to lung [Fatal]
  - Metastases to liver [Fatal]
  - Stoma site haemorrhage [Fatal]
  - Spinal cord compression [Fatal]

NARRATIVE: CASE EVENT DATE: 201401
